FAERS Safety Report 4840344-2 (Version None)
Quarter: 2005Q4

REPORT INFORMATION
  Report Type: 
  Country: None (occurrence: None)
  Receive Date: 20051025
  Receipt Date: 20040910
  Transmission Date: 20060501
  Serious: Yes (Hospitalization)
  Sender: FDA-Public Use
  Company Number: HQWYE824330JUN04

PATIENT
  Age: 48 Year
  Sex: Female
  Weight: 71.28 kg

DRUGS (13)
  1. RAPAMUNE [Suspect]
     Indication: RENAL TRANSPLANT
     Dosage: 1 MG 1X PER 1 DAY, ORAL
     Route: 048
     Dates: start: 20030101, end: 20040621
  2. HUMULIN (INSULIN HUMAN) [Concomitant]
  3. SYNTHROID [Concomitant]
  4. VITAMIN B COMPLEX (CALCIUM PANTOTHENATE/NICOTAINAMIDE/PYRIDOXINE HYDRO [Concomitant]
  5. PREDNISONE [Concomitant]
  6. CALAMINE (CALAMINE) [Concomitant]
  7. URISDE (ATROPINE SULFATE/BENZOIC ACID/GELSEMIUM/HYOSCYAMINE/METHENAM I [Concomitant]
  8. URSODIOL (URSODEOXYCHOLIC ACID) [Concomitant]
  9. CALCIUM (CALCIUM) [Concomitant]
  10. PROGRAF [Concomitant]
  11. PRILOSEC [Concomitant]
  12. PERCOCET [Concomitant]
  13. XANAX (ALPRAZOLE) [Concomitant]

REACTIONS (1)
  - HEPATOTOXICITY [None]
